FAERS Safety Report 10082102 (Version 1)
Quarter: 2014Q2

REPORT INFORMATION
  Report Type: Spontaneous
  Country: GB (occurrence: GB)
  Receive Date: 20140416
  Receipt Date: 20140416
  Transmission Date: 20141212
  Serious: Yes (Disabling)
  Sender: FDA-Public Use
  Company Number: GB-BRISTOL-MYERS SQUIBB COMPANY-20605945

PATIENT
  Age: 50 Year
  Sex: Female

DRUGS (2)
  1. ADCORTYL INJ [Suspect]
     Indication: PERIARTHRITIS
     Route: 014
     Dates: start: 20140307, end: 20140307
  2. LIDOCAINE [Suspect]
     Indication: ANALGESIC THERAPY
     Dosage: STRENGTH:1%
     Dates: start: 20140307, end: 20140307

REACTIONS (1)
  - Arthritis bacterial [Not Recovered/Not Resolved]
